FAERS Safety Report 7871059-4 (Version None)
Quarter: 2011Q4

REPORT INFORMATION
  Report Type: 
  Country: None (occurrence: None)
  Receive Date: 20111029
  Receipt Date: 20110224
  Transmission Date: 20120403
  Serious: Yes (Hospitalization)
  Sender: FDA-Public Use
  Company Number: US-AMGEN-USASP2011006838

PATIENT
  Age: 62 Year
  Sex: Female
  Weight: 79.365 kg

DRUGS (1)
  1. ENBREL [Suspect]
     Indication: PSORIASIS
     Dosage: 50 MG, Q2WK
     Dates: start: 20110110

REACTIONS (2)
  - BRONCHITIS [None]
  - PAIN [None]
